FAERS Safety Report 23104630 (Version 1)
Quarter: 2023Q4

REPORT INFORMATION
  Report Type: Other
  Country: None (occurrence: KR)
  Receive Date: 20231025
  Receipt Date: 20231025
  Transmission Date: 20240109
  Serious: Yes (Hospitalization, Other)
  Sender: FDA-Public Use
  Company Number: KR-Appco Pharma LLC-2147453

PATIENT
  Age: 72 Year
  Sex: Male

DRUGS (1)
  1. METRONIDAZOLE [Suspect]
     Active Substance: METRONIDAZOLE
     Indication: Postoperative wound infection
     Route: 048

REACTIONS (7)
  - Nervous system disorder [Unknown]
  - Toxic encephalopathy [Unknown]
  - Toxicity to various agents [Unknown]
  - Eye movement disorder [Recovered/Resolved]
  - Saccadic eye movement [Recovered/Resolved]
  - Dysmetria [Recovered/Resolved]
  - Ataxia [Unknown]
